FAERS Safety Report 24067576 (Version 3)
Quarter: 2024Q3

REPORT INFORMATION
  Report Type: Spontaneous
  Country: US (occurrence: None)
  Receive Date: 20240710
  Receipt Date: 20240831
  Transmission Date: 20241017
  Serious: No
  Sender: ASTRAZENECA
  Company Number: 2024A149144

PATIENT
  Sex: Female

DRUGS (2)
  1. BYDUREON BCISE [Suspect]
     Active Substance: EXENATIDE
     Dosage: 2 MG WEEK2.0MG UNKNOWN
     Route: 058
  2. BYETTA [Suspect]
     Active Substance: EXENATIDE
     Route: 058

REACTIONS (6)
  - Nausea [Unknown]
  - Fatigue [Unknown]
  - Drug delivery system malfunction [Unknown]
  - Wrong technique in device usage process [Unknown]
  - Incorrect dose administered by device [Unknown]
  - Device leakage [Unknown]
